FAERS Safety Report 5152248-9 (Version None)
Quarter: 2006Q4

REPORT INFORMATION
  Report Type: 
  Country: None (occurrence: None)
  Receive Date: 20061116
  Receipt Date: 20061108
  Transmission Date: 20070319
  Serious: Yes (Hospitalization)
  Sender: FDA-Public Use
  Company Number: US-JNJFOC-20061101913

PATIENT
  Sex: Female
  Weight: 2.49 kg

DRUGS (6)
  1. REMICADE [Suspect]
     Indication: DRUG EXPOSURE DURING PREGNANCY
  2. VITAMIN CAP [Concomitant]
  3. COLAZOL [Concomitant]
  4. PREDNISONE TAB [Concomitant]
  5. PROCARDIA [Concomitant]
  6. AMITRIPTYLIN [Concomitant]

REACTIONS (2)
  - JAUNDICE [None]
  - PREMATURE BABY [None]
